FAERS Safety Report 7629719-6 (Version None)
Quarter: 2011Q3

REPORT INFORMATION
  Report Type: 
  Country: None (occurrence: None)
  Receive Date: 20110722
  Receipt Date: 20110713
  Transmission Date: 20111222
  Serious: Yes (Hospitalization)
  Sender: FDA-Public Use
  Company Number: US-CEPHALON-2011003841

PATIENT
  Sex: Male

DRUGS (1)
  1. PROVIGIL [Suspect]
     Route: 064

REACTIONS (2)
  - CONVULSION NEONATAL [None]
  - EAR INFECTION [None]
